FAERS Safety Report 6274075-1 (Version None)
Quarter: 2009Q3

REPORT INFORMATION
  Report Type: 
  Country: None (occurrence: None)
  Receive Date: 20090720
  Receipt Date: 20090707
  Transmission Date: 20100115
  Serious: Yes (Life-Threatening, Hospitalization, Other)
  Sender: FDA-Public Use
  Company Number: JO-ALLERGAN-200600817

PATIENT
  Age: 28 Year
  Sex: Male
  Weight: 80 kg

DRUGS (1)
  1. BOTOX [Suspect]
     Indication: STRABISMUS
     Dosage: 2.5UNITS, SINGLE
     Route: 030
     Dates: start: 20060101, end: 20060101

REACTIONS (6)
  - BULBAR PALSY [None]
  - MUSCULAR WEAKNESS [None]
  - MYASTHENIC SYNDROME [None]
  - OPHTHALMOPLEGIA [None]
  - RESPIRATORY DISORDER [None]
  - TONGUE PARALYSIS [None]
